FAERS Safety Report 7692736-4 (Version None)
Quarter: 2011Q3

REPORT INFORMATION
  Report Type: 
  Country: None (occurrence: None)
  Receive Date: 20110819
  Receipt Date: 20110817
  Transmission Date: 20111222
  Serious: Yes (Other)
  Sender: FDA-Public Use
  Company Number: US-PFIZER INC-2011190195

PATIENT
  Sex: Female
  Weight: 83.9 kg

DRUGS (3)
  1. GABAPENTIN [Suspect]
     Indication: NERVE INJURY
     Dosage: SIX CAPSULES IN A DAY
     Dates: start: 20070301, end: 20110501
  2. LYRICA [Suspect]
     Indication: NERVE INJURY
     Dosage: 300MG TWO CAPSULES A DAY
     Dates: start: 20110501
  3. LORTAB [Concomitant]
     Indication: NEURALGIA
     Dosage: UNK

REACTIONS (2)
  - DRUG INEFFECTIVE [None]
  - WEIGHT INCREASED [None]
